FAERS Safety Report 4522192-6 (Version None)
Quarter: 2004Q4

REPORT INFORMATION
  Report Type: 
  Country: None (occurrence: None)
  Receive Date: 20041206
  Receipt Date: 20041122
  Transmission Date: 20050328
  Serious: Yes (Death, Hospitalization)
  Sender: FDA-Public Use
  Company Number: US-2004-025259

PATIENT
  Age: 67 Year
  Sex: Male

DRUGS (9)
  1. BETASERON [Suspect]
     Indication: MULTIPLE SCLEROSIS
     Dosage: 8 MIU, EVERY 2D, SUBCUTANEOUS
     Route: 058
     Dates: start: 20030401, end: 20040415
  2. DOCUSATE [Concomitant]
  3. ACETYLSALICYLIC ACID SRT [Concomitant]
  4. TYLENOL (CAPLET) [Concomitant]
  5. NEURONTIN [Concomitant]
  6. BACLOFEN [Concomitant]
  7. LASIX [Concomitant]
  8. LISINOPRIL [Concomitant]
  9. EFFEXOR XR [Concomitant]

REACTIONS (3)
  - HAEMORRHAGE [None]
  - HYPOAESTHESIA [None]
  - KIDNEY INFECTION [None]
